FAERS Safety Report 23148463 (Version 4)
Quarter: 2023Q4

REPORT INFORMATION
  Report Type: Spontaneous
  Country: US (occurrence: US)
  Receive Date: 20231106
  Receipt Date: 20231115
  Transmission Date: 20240109
  Serious: No
  Sender: FDA-Public Use
  Company Number: US-PFIZER INC-202300352322

PATIENT
  Age: 67 Year
  Sex: Female
  Weight: 56.7 kg

DRUGS (1)
  1. PAXLOVID [Suspect]
     Active Substance: NIRMATRELVIR\RITONAVIR
     Indication: COVID-19 treatment
     Dosage: DOSE UNKNOWN, TOOK THEM TWICE A DAY BY MOUTH
     Route: 048
     Dates: start: 20220826, end: 20220831

REACTIONS (1)
  - Therapeutic response unexpected [Unknown]
